FAERS Safety Report 9257252 (Version 2)
Quarter: 2013Q2

REPORT INFORMATION
  Report Type: Report from Study
  Country: AU (occurrence: AU)
  Receive Date: 20130426
  Receipt Date: 20130503
  Transmission Date: 20140414
  Serious: Yes (Other)
  Sender: FDA-Public Use
  Company Number: PHHY2013AU032705

PATIENT
  Age: 51 Year
  Sex: Female

DRUGS (2)
  1. CLOZARIL [Suspect]
     Dosage: 250 MG, UNK
     Dates: start: 20100503
  2. INTERFERON [Suspect]

REACTIONS (4)
  - Hepatitis C [Unknown]
  - Pancytopenia [Unknown]
  - White blood cell count decreased [Unknown]
  - Neutrophil count decreased [Recovered/Resolved]
